FAERS Safety Report 7485639-1 (Version None)
Quarter: 2011Q2

REPORT INFORMATION
  Report Type: 
  Country: None (occurrence: None)
  Receive Date: 20110516
  Receipt Date: 20110516
  Transmission Date: 20111010
  Serious: No
  Sender: FDA-Public Use
  Company Number: None

PATIENT
  Age: 66 Year
  Sex: Female
  Weight: 80.7403 kg

DRUGS (2)
  1. INSULIN [Suspect]
  2. REGULAR INSULIN [Suspect]

REACTIONS (2)
  - BLOOD GLUCOSE DECREASED [None]
  - THERAPEUTIC RESPONSE INCREASED [None]
